FAERS Safety Report 4675130-X (Version None)
Quarter: 2005Q2

REPORT INFORMATION
  Report Type: 
  Country: None (occurrence: None)
  Receive Date: 20050525
  Receipt Date: 20050512
  Transmission Date: 20051028
  Serious: Yes (Disabling)
  Sender: FDA-Public Use
  Company Number: HQWYE701512MAY05

PATIENT
  Age: 1 Day
  Sex: Male

DRUGS (2)
  1. PROPRANOLOL HYDROCHLORIDE [Suspect]
     Indication: CARDIAC MURMUR
     Dosage: 40 MG 2X PER 1 DAY TRANSPLACENTAL
     Route: 064
  2. PROPRANOLOL HYDROCHLORIDE [Suspect]
     Indication: MIGRAINE
     Dosage: 40 MG 2X PER 1 DAY TRANSPLACENTAL
     Route: 064

REACTIONS (6)
  - CONGENITAL BOWING OF LONG BONES [None]
  - CONGENITAL PYELOCALIECTASIS [None]
  - DRUG EXPOSURE DURING PREGNANCY [None]
  - LIMB MALFORMATION [None]
  - PHALANGEAL AGENESIS [None]
  - SYNDACTYLY [None]
